FAERS Safety Report 16578109 (Version 8)
Quarter: 2020Q2

REPORT INFORMATION
  Report Type: Spontaneous
  Country: US (occurrence: US)
  Receive Date: 20190716
  Receipt Date: 20200522
  Transmission Date: 20200713
  Serious: No
  Sender: FDA-Public Use
  Company Number: US-PFIZER INC-2019301754

PATIENT
  Age: 65 Year
  Sex: Male
  Weight: 63 kg

DRUGS (3)
  1. LYRICA [Suspect]
     Active Substance: PREGABALIN
     Indication: NEURALGIA
  2. LYRICA [Suspect]
     Active Substance: PREGABALIN
     Indication: PARKINSON^S DISEASE
     Dosage: 150 MG, 2X/DAY
     Route: 048
  3. LYRICA [Suspect]
     Active Substance: PREGABALIN
     Indication: PAIN
     Dosage: 150 MG, 3X/DAY [TAKE 1 CAPSULE BY MOUTH THREE TIMES A DAY]
     Route: 048

REACTIONS (3)
  - Anxiety [Unknown]
  - Auditory disorder [Unknown]
  - Drug effective for unapproved indication [Unknown]
